FAERS Safety Report 5343985-1 (Version None)
Quarter: 2007Q2

REPORT INFORMATION
  Report Type: 
  Country: None (occurrence: None)
  Receive Date: 20070604
  Receipt Date: 20070523
  Transmission Date: 20071010
  Serious: Yes (Hospitalization)
  Sender: FDA-Public Use
  Company Number: PL-AVENTIS-200714682GDDC

PATIENT
  Age: 58 Year
  Sex: Male

DRUGS (1)
  1. ARAVA [Suspect]
     Route: 048
     Dates: start: 20060421, end: 20070324

REACTIONS (2)
  - HYPERTENSION [None]
  - ISCHAEMIC STROKE [None]
